FAERS Safety Report 7311539-3 (Version None)
Quarter: 2011Q1

REPORT INFORMATION
  Report Type: 
  Country: None (occurrence: None)
  Receive Date: 20110224
  Receipt Date: 20110221
  Transmission Date: 20110831
  Serious: Yes (Death)
  Sender: FDA-Public Use
  Company Number: VE-PFIZER INC-2011037602

PATIENT
  Age: 83 Year
  Sex: Male

DRUGS (1)
  1. CADUET [Suspect]
     Indication: HYPERTENSION
     Dosage: 5/20 MG, 1X/DAY
     Route: 048
     Dates: end: 20101112

REACTIONS (1)
  - RESPIRATORY ARREST [None]
